FAERS Safety Report 17397808 (Version 1)
Quarter: 2020Q1

REPORT INFORMATION
  Report Type: Report from Study
  Country: ES (occurrence: ES)
  Receive Date: 20200210
  Receipt Date: 20200210
  Transmission Date: 20200409
  Serious: Yes (Hospitalization)
  Sender: FDA-Public Use
  Company Number: ES-MYLANLABS-2020M1013905

PATIENT
  Age: 67 Year
  Sex: Male

DRUGS (5)
  1. FUROSEMIDA                         /00032601/ [Suspect]
     Active Substance: FUROSEMIDE
     Indication: PRODUCT USED FOR UNKNOWN INDICATION
     Dosage: UNK
     Route: 007
     Dates: start: 20180411, end: 20180416
  2. NIFEDIPINO [Concomitant]
     Active Substance: NIFEDIPINE
     Dosage: UNK
     Dates: start: 20180411
  3. ENALAPRIL [Suspect]
     Active Substance: ENALAPRIL
     Indication: HYPERTENSION
     Dosage: UNK
     Route: 065
     Dates: start: 20180411, end: 20180416
  4. METAMIZOL                          /06276701/ [Concomitant]
     Active Substance: METAMIZOLE
     Dosage: UNK
     Dates: start: 20180411
  5. SIMVASTATINA [Concomitant]
     Active Substance: SIMVASTATIN
     Indication: DYSLIPIDAEMIA
     Dosage: UNK

REACTIONS (1)
  - Acute kidney injury [Recovered/Resolved]

NARRATIVE: CASE EVENT DATE: 20180412
